FAERS Safety Report 7453379-0 (Version None)
Quarter: 2011Q2

REPORT INFORMATION
  Report Type: 
  Country: None (occurrence: None)
  Receive Date: 20110502
  Receipt Date: 20110426
  Transmission Date: 20111010
  Serious: Yes (Other)
  Sender: FDA-Public Use
  Company Number: CHPA2011US05987

PATIENT
  Age: 19 Year
  Sex: Male
  Weight: 61.224 kg

DRUGS (1)
  1. THERAFLU NIGHTTIME SEVERE COLD + COUGH [Suspect]
     Dosage: 4 DF, ONCE/SINGLE
     Route: 048
     Dates: start: 20110425, end: 20110425

REACTIONS (5)
  - APHASIA [None]
  - ABNORMAL BEHAVIOUR [None]
  - CONFUSIONAL STATE [None]
  - INCORRECT DOSE ADMINISTERED [None]
  - URINARY INCONTINENCE [None]
